FAERS Safety Report 6216885-2 (Version None)
Quarter: 2009Q2

REPORT INFORMATION
  Report Type: 
  Country: None (occurrence: None)
  Receive Date: 20090605
  Receipt Date: 20090526
  Transmission Date: 20091009
  Serious: Yes (Hospitalization, Other)
  Sender: FDA-Public Use
  Company Number: US-AMGEN-KDL252173

PATIENT
  Sex: Female
  Weight: 83.5 kg

DRUGS (18)
  1. ENBREL [Suspect]
     Indication: RHEUMATOID ARTHRITIS
     Route: 058
     Dates: start: 20040801
  2. ENBREL [Suspect]
     Indication: INFERTILITY
  3. PLAQUENIL [Concomitant]
     Route: 065
     Dates: end: 20071001
  4. HUMIRA [Concomitant]
     Route: 065
     Dates: start: 20050801, end: 20050901
  5. FLONASE [Concomitant]
     Route: 065
  6. CLARITIN [Concomitant]
     Route: 048
  7. PEPCID [Concomitant]
     Route: 048
  8. ADVAIR HFA [Concomitant]
     Route: 065
  9. FOLIC ACID [Concomitant]
     Route: 048
  10. VITAMIN TAB [Concomitant]
     Route: 065
  11. LOVENOX [Concomitant]
     Route: 058
     Dates: start: 20080104
  12. THYROID TAB [Concomitant]
     Route: 048
  13. FISH OIL [Concomitant]
     Route: 048
  14. CALCIUM [Concomitant]
     Route: 048
  15. ASCORBIC ACID [Concomitant]
     Route: 048
  16. ASPIRIN [Concomitant]
     Route: 048
  17. VITAMIN B COMPLEX CAP [Concomitant]
  18. ALBUTEROL [Concomitant]

REACTIONS (10)
  - ARTHRALGIA [None]
  - ECLAMPSIA [None]
  - FIBROMYALGIA [None]
  - LYMPHOCYTE COUNT INCREASED [None]
  - NASOPHARYNGITIS [None]
  - PRE-ECLAMPSIA [None]
  - PREMATURE LABOUR [None]
  - RHEUMATOID ARTHRITIS [None]
  - URINARY TRACT INFECTION [None]
  - VOMITING IN PREGNANCY [None]
